FAERS Safety Report 19825350 (Version 1)
Quarter: 2021Q3

REPORT INFORMATION
  Report Type: Spontaneous
  Country: US (occurrence: US)
  Receive Date: 20210911
  Receipt Date: 20210911
  Transmission Date: 20211014
  Serious: Yes (Hospitalization)
  Sender: FDA-Public Use
  Company Number: None

PATIENT
  Age: 62 Year
  Sex: Female

DRUGS (2)
  1. AIMOVIG [Suspect]
     Active Substance: ERENUMAB-AOOE
     Indication: BREAST CANCER FEMALE
     Dosage: OTHER ROUTE:UNDER THE SKIN?
     Route: 058
     Dates: start: 20190321
  2. AIMOVIG [Suspect]
     Active Substance: ERENUMAB-AOOE
     Indication: MIGRAINE WITHOUT AURA
     Dosage: OTHER ROUTE:UNDER THE SKIN?
     Route: 058
     Dates: start: 20190321

REACTIONS (1)
  - Sepsis [None]

NARRATIVE: CASE EVENT DATE: 202108
